FAERS Safety Report 7361342-3 (Version None)
Quarter: 2011Q1

REPORT INFORMATION
  Report Type: 
  Country: None (occurrence: None)
  Receive Date: 20110318
  Receipt Date: 20110314
  Transmission Date: 20110831
  Serious: Yes (Hospitalization)
  Sender: FDA-Public Use
  Company Number: B0705699A

PATIENT
  Sex: Male

DRUGS (6)
  1. AMLODIPINE BESYLATE [Suspect]
     Dosage: 5MG PER DAY
     Route: 048
  2. KARDEGIC [Suspect]
     Indication: MYOCARDIAL INFARCTION
     Dosage: 160MG PER DAY
     Route: 048
  3. TAHOR [Suspect]
     Dosage: 20MG PER DAY
     Route: 048
  4. AUGMENTIN [Suspect]
     Route: 048
     Dates: start: 20101006
  5. ACEBUTOLOL [Suspect]
     Dosage: 1UNIT PER DAY
     Route: 048
  6. RAMIPRIL [Suspect]
     Dosage: 1UNIT PER DAY
     Route: 048
     Dates: start: 20030101, end: 20101001

REACTIONS (5)
  - LIP OEDEMA [None]
  - TONGUE OEDEMA [None]
  - LOCALISED OEDEMA [None]
  - HYPERSENSITIVITY [None]
  - ANGIOEDEMA [None]
